FAERS Safety Report 4421814-8 (Version None)
Quarter: 2004Q3

REPORT INFORMATION
  Report Type: 
  Country: None (occurrence: None)
  Receive Date: 20040806
  Receipt Date: 20040726
  Transmission Date: 20050211
  Serious: Yes (Hospitalization)
  Sender: FDA-Public Use
  Company Number: US-JNJFOC-20040707124

PATIENT
  Age: 56 Year
  Sex: Male

DRUGS (15)
  1. INFLIXIMAB   (INFLIXIMAB, RECOMBINANT) LYOPHILIZED POWDER [Suspect]
     Indication: RHEUMATOID ARTHRITIS
     Dosage: EVERY 8 WEEKS
     Dates: start: 20020226
  2. METHOTREXATE [Concomitant]
  3. ALPRAZOLAM [Concomitant]
  4. GLYBURIDE [Concomitant]
  5. FLOMAX [Concomitant]
  6. METOPROLOL           (METOPROLOL) [Concomitant]
  7. CELEXA [Concomitant]
  8. PROTONIX [Concomitant]
  9. PREDNISONE [Concomitant]
  10. TYLENOL #3             (ACETAMONOPHEN/CODEINE) [Concomitant]
  11. FOLIC ACID [Concomitant]
  12. CENTRUM SILVER      (CENTRUM SILVER) [Concomitant]
  13. CALCIUM   (CALCIUM) [Concomitant]
  14. NICARDIPINE HCL [Concomitant]
  15. OXYCONTIN [Concomitant]

REACTIONS (3)
  - ABDOMINAL HERNIA [None]
  - HERNIA REPAIR [None]
  - POSTOPERATIVE INFECTION [None]
